FAERS Safety Report 12223623 (Version 2)
Quarter: 2016Q2

REPORT INFORMATION
  Report Type: Report from Study
  Country: US (occurrence: US)
  Receive Date: 20160330
  Receipt Date: 20160419
  Transmission Date: 20160815
  Serious: Yes (Death, Hospitalization, Other)
  Sender: FDA-Public Use
  Company Number: US-GILEAD-2016-0205471

PATIENT
  Age: 32 Year
  Sex: Female

DRUGS (2)
  1. AZTREONAM LYSINE [Suspect]
     Active Substance: AZTREONAM LYSINE
     Indication: INFECTIVE EXACERBATION OF BRONCHIECTASIS
  2. AZTREONAM LYSINE [Suspect]
     Active Substance: AZTREONAM LYSINE
     Indication: PSEUDOMONAS INFECTION
     Dosage: 75 MG, UNK
     Route: 055
     Dates: start: 20130117, end: 20160305

REACTIONS (16)
  - Graft versus host disease [Fatal]
  - Fall [Unknown]
  - Hip fracture [Unknown]
  - Fall [Unknown]
  - Rhinovirus infection [Unknown]
  - Humerus fracture [Unknown]
  - Transplantation complication [Unknown]
  - Drug dose omission [Unknown]
  - Respiratory failure [Unknown]
  - Respiratory syncytial virus infection [Unknown]
  - Drug withdrawal syndrome [Unknown]
  - Pneumonia [Unknown]
  - Hypoxia [Unknown]
  - Fracture treatment [Unknown]
  - Off label use [Unknown]
  - Fall [Unknown]

NARRATIVE: CASE EVENT DATE: 201502
